FAERS Safety Report 7547991-8 (Version None)
Quarter: 2011Q2

REPORT INFORMATION
  Report Type: 
  Country: None (occurrence: None)
  Receive Date: 20110608
  Receipt Date: 20110525
  Transmission Date: 20111010
  Serious: Yes (Hospitalization)
  Sender: FDA-Public Use
  Company Number: 2009AL000294

PATIENT
  Age: 81 Year
  Sex: Male
  Weight: 68 kg

DRUGS (1)
  1. PRALATREXATE (PRALATREXATE) [Suspect]
     Indication: BLADDER CANCER
     Dosage: 216.36 MG, QOW, IV
     Route: 042
     Dates: start: 20090119, end: 20090506

REACTIONS (12)
  - ASTHENIA [None]
  - MUCOSAL INFLAMMATION [None]
  - HYPOTHYROIDISM [None]
  - METASTASES TO BONE [None]
  - FEBRILE NEUTROPENIA [None]
  - STOMATITIS [None]
  - ANAEMIA [None]
  - FATIGUE [None]
  - NEOPLASM PROGRESSION [None]
  - DYSPNOEA [None]
  - METASTASES TO LUNG [None]
  - BLADDER CANCER [None]
